FAERS Safety Report 8571615-4 (Version None)
Quarter: 2012Q3

REPORT INFORMATION
  Report Type: 
  Country: None (occurrence: None)
  Receive Date: 20120806
  Receipt Date: 20120801
  Transmission Date: 20120928
  Serious: Yes (Hospitalization)
  Sender: FDA-Public Use
  Company Number: PHHY2011MX106208

PATIENT
  Sex: Female

DRUGS (8)
  1. DIOVAN [Suspect]
     Indication: HYPERTENSION
     Dosage: 160 MG, ONE TABLET PER DAY
     Dates: start: 20091101, end: 20111001
  2. DIOVAN [Suspect]
     Dosage: 2.5 DF, QD
     Dates: start: 20120801
  3. METFORMIN HYDROCHLORIDE [Concomitant]
     Dosage: 1500 MG, QD
  4. DIOVAN [Suspect]
     Dosage: 2 DF, QD
     Dates: start: 20120501
  5. METFORMIN HYDROCHLORIDE [Concomitant]
     Indication: DIABETES MELLITUS
     Dosage: 850 MG, (THREE TABLETS DAILY)
  6. LANTUS [Concomitant]
     Indication: DIABETES MELLITUS
     Dosage: 25 MG, QD
     Dates: start: 20110601
  7. JANUVIA [Concomitant]
     Indication: DIABETES MELLITUS
     Dosage: 100 MG, (ONE TABLET)
     Dates: start: 20111001
  8. JANUVIA [Concomitant]
     Dosage: 1 UKN, QD

REACTIONS (3)
  - BLOOD PRESSURE INADEQUATELY CONTROLLED [None]
  - INFLUENZA [None]
  - HEADACHE [None]
